FAERS Safety Report 6139291-8 (Version None)
Quarter: 2009Q2

REPORT INFORMATION
  Report Type: 
  Country: None (occurrence: None)
  Receive Date: 20090401
  Receipt Date: 20090330
  Transmission Date: 20091009
  Serious: Yes (Hospitalization)
  Sender: FDA-Public Use
  Company Number: AU-BRISTOL-MYERS SQUIBB COMPANY-14566533

PATIENT
  Age: 74 Year
  Sex: Female

DRUGS (7)
  1. CISPLATIN [Suspect]
     Dosage: 1 TIME.
     Dates: start: 20070226, end: 20070226
  2. ETOPOSIDE [Suspect]
     Dates: start: 20070226, end: 20070227
  3. IFOSFAMIDE [Suspect]
     Dosage: FORMULATION:INJECTION; 1 TIME.
     Dates: start: 20070226, end: 20070226
  4. MESNA [Suspect]
     Dates: start: 20070226
  5. IRBESARTAN [Concomitant]
  6. OXYCONTIN [Concomitant]
  7. SLOW-K [Concomitant]
     Dosage: 1DF=3 ENZYME LINKED.

REACTIONS (1)
  - MYOCLONIC EPILEPSY [None]
